FAERS Safety Report 7723739-9 (Version None)
Quarter: 2011Q3

REPORT INFORMATION
  Report Type: 
  Country: None (occurrence: None)
  Receive Date: 20110901
  Receipt Date: 20110707
  Transmission Date: 20111222
  Serious: Yes (Hospitalization)
  Sender: FDA-Public Use
  Company Number: PHHO2011NL11722

PATIENT
  Age: 53 Year
  Sex: Female

DRUGS (8)
  1. NO TREATMENT RECEIVED [Suspect]
     Indication: BREAST CANCER
  2. NEULASTA [Concomitant]
     Indication: PROPHYLAXIS
  3. DEXAMETHASONE [Suspect]
     Indication: PROPHYLAXIS
  4. CYCLOPHOSPHAMIDE [Concomitant]
     Indication: BREAST CANCER
     Dosage: 950 MG, UNK
     Route: 042
     Dates: start: 20110530, end: 20110620
  5. GRANISETRON [Concomitant]
     Indication: PROPHYLAXIS
  6. ONDANSETRON [Concomitant]
     Indication: PROPHYLAXIS
  7. DOXORUBICIN HCL [Concomitant]
     Indication: BREAST CANCER
     Dosage: 95 MG, UNK
     Route: 042
     Dates: start: 20110530, end: 20110620
  8. DOCETAXEL [Concomitant]
     Indication: BREAST CANCER
     Dosage: 140 MG, UNK
     Route: 042
     Dates: start: 20110530, end: 20110620

REACTIONS (1)
  - PALPITATIONS [None]
